FAERS Safety Report 5205701-3 (Version None)
Quarter: 2007Q1

REPORT INFORMATION
  Report Type: 
  Country: None (occurrence: None)
  Receive Date: 20070105
  Receipt Date: 20070105
  Transmission Date: 20070707
  Serious: No
  Sender: FDA-Public Use
  Company Number: None

PATIENT
  Age: 62 Year
  Sex: Female
  Weight: 67.1324 kg

DRUGS (1)
  1. PIROXICAM [Suspect]
     Indication: ARTHRITIS
     Dosage: 1 CAPSULE 1 PER DAY

REACTIONS (1)
  - ALOPECIA [None]
